FAERS Safety Report 7650345-7 (Version None)
Quarter: 2011Q3

REPORT INFORMATION
  Report Type: 
  Country: None (occurrence: None)
  Receive Date: 20110719
  Receipt Date: 20100610
  Transmission Date: 20111222
  Serious: Yes (Other)
  Sender: FDA-Public Use
  Company Number: 163-CCAZA-10061205

PATIENT

DRUGS (4)
  1. AZACITIDINE [Suspect]
     Indication: PRODUCT USED FOR UNKNOWN INDICATION
     Dosage: 75 MG/M2, PER DAY FOR  7 DAYS REPEATED EVERY 4 WEEK, IV
     Route: 042
  2. ALL-TRANS-RETINOIC ACID (TRETINOIN) (UNKNOWN) [Concomitant]
  3. VALPROIC ACID [Concomitant]
  4. AZACITIDINE [Suspect]
     Dosage: 75 MG/M2, PER DAY FOR 7 DAYS REPEATED EVERY 4 WEEK, SC
     Route: 058

REACTIONS (12)
  - PYREXIA [None]
  - HAEMORRHAGE [None]
  - FATIGUE [None]
  - RASH [None]
  - NAUSEA [None]
  - SEPSIS [None]
  - INFECTION [None]
  - HEPATIC ENZYME ABNORMAL [None]
  - BONE PAIN [None]
  - VOMITING [None]
  - DIARRHOEA [None]
  - PNEUMONIA [None]
